FAERS Safety Report 4282279-2 (Version None)
Quarter: 2004Q1

REPORT INFORMATION
  Report Type: 
  Country: None (occurrence: None)
  Receive Date: 20040112
  Receipt Date: 20031101
  Transmission Date: 20041129
  Serious: No
  Sender: FDA-Public Use
  Company Number: PHEH2003US10128

PATIENT
  Sex: Female

DRUGS (2)
  1. ELIDEL [Suspect]
     Dosage: BID, TOPICAL
     Route: 061
  2. ALCOHOL (ETHANOL) [Suspect]

REACTIONS (3)
  - APPLICATION SITE ERYTHEMA [None]
  - APPLICATION SITE SWELLING [None]
  - APPLICATION SITE WARMTH [None]
